FAERS Safety Report 4736013-X (Version None)
Quarter: 2005Q3

REPORT INFORMATION
  Report Type: 
  Country: None (occurrence: None)
  Receive Date: 20050805
  Receipt Date: 20050419
  Transmission Date: 20060218
  Serious: Yes (Hospitalization, Other)
  Sender: FDA-Public Use
  Company Number: US-MERCK-0504USA03740

PATIENT
  Age: 75 Year
  Sex: Female
  Weight: 68 kg

DRUGS (6)
  1. VIOXX [Suspect]
     Indication: BACK PAIN
     Route: 048
     Dates: start: 20010123, end: 20010327
  2. VIOXX [Suspect]
     Route: 048
     Dates: start: 20010328, end: 20010430
  3. VIOXX [Suspect]
     Route: 048
     Dates: start: 20010501, end: 20010505
  4. VIOXX [Suspect]
     Route: 048
     Dates: start: 20010506, end: 20020415
  5. PLAVIX [Concomitant]
     Route: 065
     Dates: start: 20000513, end: 20050325
  6. ZOCOR [Concomitant]
     Route: 048
     Dates: start: 19980813, end: 20040617

REACTIONS (6)
  - ADVERSE EVENT [None]
  - CEREBROVASCULAR ACCIDENT [None]
  - GALLBLADDER DISORDER [None]
  - LIPOMA [None]
  - MYOCARDIAL INFARCTION [None]
  - PIGMENTED NAEVUS [None]
